FAERS Safety Report 18190434 (Version 2)
Quarter: 2020Q3

REPORT INFORMATION
  Report Type: Spontaneous
  Country: US (occurrence: US)
  Receive Date: 20200825
  Receipt Date: 20200918
  Transmission Date: 20201103
  Serious: Yes (Hospitalization, Other)
  Sender: FDA-Public Use
  Company Number: US-SA-2020SA222700

PATIENT

DRUGS (2)
  1. DUPIXENT [Suspect]
     Active Substance: DUPILUMAB
     Indication: ASTHMA
     Dosage: 0.5 DF, Q12H,HALF OF THE LOADING DOSE AND OTHER HALF AFTER 12 HOURS
  2. DUPIXENT [Suspect]
     Active Substance: DUPILUMAB
     Dosage: 300 MG, QOW
     Route: 058
     Dates: start: 20200908, end: 20200908

REACTIONS (6)
  - Pruritus [Recovered/Resolved]
  - Anaphylactic reaction [Unknown]
  - Flushing [Recovered/Resolved]
  - Wrong technique in product usage process [Unknown]
  - Burning sensation [Recovered/Resolved]
  - Throat tightness [Recovered/Resolved]

NARRATIVE: CASE EVENT DATE: 20200908
